FAERS Safety Report 6058810-3 (Version None)
Quarter: 2009Q1

REPORT INFORMATION
  Report Type: 
  Country: None (occurrence: None)
  Receive Date: 20090128
  Receipt Date: 20090128
  Transmission Date: 20090719
  Serious: Yes (Hospitalization)
  Sender: FDA-Public Use
  Company Number: None

PATIENT
  Sex: Female
  Weight: 51.36 kg

DRUGS (1)
  1. CISPLATIN [Suspect]
     Dosage: 320 MG
     Dates: end: 20080617

REACTIONS (4)
  - DYSPHAGIA [None]
  - NAUSEA [None]
  - ORAL CANDIDIASIS [None]
  - VOMITING [None]
